FAERS Safety Report 21499118 (Version 3)
Quarter: 2025Q3

REPORT INFORMATION
  Report Type: Report from Study
  Country: US (occurrence: US)
  Receive Date: 20221024
  Receipt Date: 20250710
  Transmission Date: 20251020
  Serious: Yes (Hospitalization)
  Sender: JAZZ
  Company Number: US-GW PHARMA-2022-US-027501

PATIENT
  Age: 5 Year
  Sex: Male

DRUGS (7)
  1. EPIDIOLEX [Suspect]
     Active Substance: CANNABIDIOL
     Indication: Epilepsy
     Dosage: 0.5 MILLILITER, BID FOR 7 DAYS
     Route: 048
     Dates: start: 202207
  2. EPIDIOLEX [Suspect]
     Active Substance: CANNABIDIOL
     Indication: Partial seizures
     Dosage: 0.85 MILLILITER, BID FOR 7 DAYS
     Route: 048
  3. EPIDIOLEX [Suspect]
     Active Substance: CANNABIDIOL
     Indication: Simple partial seizures
     Dosage: 1.3 MILLILITER, BID FOR 7 DAYS
     Route: 048
  4. EPIDIOLEX [Suspect]
     Active Substance: CANNABIDIOL
     Indication: Epilepsy
     Dosage: 1.7 MILLILITER, BID FOR 7 DAYS
     Route: 048
  5. EPIDIOLEX [Suspect]
     Active Substance: CANNABIDIOL
     Indication: Tuberous sclerosis complex
     Dosage: 2.1 MILLILITER, BID
     Route: 048
  6. EPIDIOLEX [Suspect]
     Active Substance: CANNABIDIOL
     Route: 048
     Dates: start: 20220721
  7. EPIDIOLEX [Suspect]
     Active Substance: CANNABIDIOL
     Dosage: 2.1 MILLILITER, BID
     Route: 048
     Dates: start: 20220823

REACTIONS (2)
  - Hospitalisation [Unknown]
  - Off label use [Unknown]

NARRATIVE: CASE EVENT DATE: 20220729
